FAERS Safety Report 18600852 (Version 3)
Quarter: 2020Q4

REPORT INFORMATION
  Report Type: Spontaneous
  Country: CO (occurrence: CO)
  Receive Date: 20201210
  Receipt Date: 20201222
  Transmission Date: 20210114
  Serious: No
  Sender: FDA-Public Use
  Company Number: CO-PFIZER INC-2020483516

PATIENT
  Age: 64 Year
  Sex: Female

DRUGS (1)
  1. REAMPLA [Suspect]
     Active Substance: PALBOCICLIB
     Indication: BREAST NEOPLASM
     Dosage: 125 MG, CYCLIC (DAILY FOR 21 DAYS AND REST FOR 10 DAYS)
     Route: 048
     Dates: start: 201806

REACTIONS (4)
  - Fatigue [Unknown]
  - Pain [Not Recovered/Not Resolved]
  - Neoplasm progression [Not Recovered/Not Resolved]
  - Mobility decreased [Unknown]
